FAERS Safety Report 8847975 (Version 1)
Quarter: 2012Q4

REPORT INFORMATION
  Report Type: 
  Country: US (occurrence: US)
  Receive Date: 20121018
  Receipt Date: 20121018
  Transmission Date: 20130627
  Serious: No
  Sender: FDA-Public Use
  Company Number: US-BAYER-2012-108651

PATIENT
  Age: 67 Year
  Sex: Female
  Weight: 63.49 kg

DRUGS (13)
  1. BETASERON [Suspect]
     Dosage: 0.25 mg, QOD
     Route: 058
  2. AMPYRA [Concomitant]
     Dosage: 10 mg, UNK
  3. METOPROLOL [Concomitant]
     Dosage: 100 mg, UNK
  4. TEGRETOL [Concomitant]
     Dosage: 200 mg, UNK
  5. LEVOTHYROXIN [Concomitant]
     Dosage: 175 ?g, UNK
  6. DOXAZOSIN [Concomitant]
     Dosage: 4 mg, UNK
  7. FOSAMAX [Concomitant]
     Dosage: 35 mg, UNK
  8. C 500 TAB [Concomitant]
  9. B12 [Concomitant]
     Dosage: 1000 CR, UNK
  10. E 1000 CAP [Concomitant]
     Dosage: 1000 UNK, UNK
  11. CALCIUM [Concomitant]
     Dosage: 500 UNK. UNK
  12. D-3-5 CAP [Concomitant]
     Dosage: 5000 UNIT, UNK
  13. OMEGA 3 [Concomitant]
     Dosage: 1200 mg, UNK

REACTIONS (2)
  - Gait disturbance [Unknown]
  - Mobility decreased [Unknown]
